FAERS Safety Report 7520252-9 (Version None)
Quarter: 2011Q2

REPORT INFORMATION
  Report Type: 
  Country: None (occurrence: None)
  Receive Date: 20110602
  Receipt Date: 20110531
  Transmission Date: 20111010
  Serious: Yes (Congenital Anomaly)
  Sender: FDA-Public Use
  Company Number: US-GILEAD-2010-0034756

PATIENT
  Age: 38 Week
  Sex: Female

DRUGS (6)
  1. ATRIPLA [Suspect]
     Indication: HIV INFECTION
     Route: 048
     Dates: start: 20071015, end: 20101006
  2. COMBIVIR [Concomitant]
     Indication: HIV INFECTION
     Route: 048
     Dates: start: 20101006, end: 20110512
  3. ZIDOVUDINE [Concomitant]
     Indication: HIV INFECTION
     Route: 042
     Dates: start: 20110512, end: 20110512
  4. COMBIVIR [Concomitant]
     Route: 048
     Dates: start: 20110514
  5. EPIVIR [Concomitant]
     Indication: HIV INFECTION
     Route: 048
     Dates: start: 20110512, end: 20110514
  6. KALETRA [Concomitant]
     Indication: HIV INFECTION
     Route: 048
     Dates: start: 20101006

REACTIONS (2)
  - PYELOCALIECTASIS [None]
  - CONGENITAL CHOROID PLEXUS CYST [None]
